FAERS Safety Report 4445927-X (Version None)
Quarter: 2004Q3

REPORT INFORMATION
  Report Type: 
  Country: None (occurrence: None)
  Receive Date: 20040903
  Receipt Date: 20040830
  Transmission Date: 20050211
  Serious: Yes (Hospitalization)
  Sender: FDA-Public Use
  Company Number: US-2004-029043

PATIENT
  Age: 44 Year
  Sex: Female

DRUGS (8)
  1. BETASERON [Suspect]
     Indication: MULTIPLE SCLEROSIS
     Dosage: 8 MIU, EVERY 2D, SUBCUTANEOUS
     Route: 058
     Dates: start: 19950101
  2. PREMARIN [Concomitant]
  3. ATIVAN [Concomitant]
  4. ALLEGRA [Concomitant]
  5. OGDEN (ESTROPIPATE) [Concomitant]
  6. WELLBUTRIN [Concomitant]
  7. TRAZODONE HCL [Concomitant]
  8. TEMAZEPAM [Concomitant]

REACTIONS (4)
  - CARDIOLIPIN ANTIBODY POSITIVE [None]
  - CEREBROVASCULAR ACCIDENT [None]
  - PROTEIN S INCREASED [None]
  - RED BLOOD CELL SEDIMENTATION RATE INCREASED [None]
